FAERS Safety Report 8174291-8 (Version None)
Quarter: 2012Q1

REPORT INFORMATION
  Report Type: 
  Country: None (occurrence: None)
  Receive Date: 20120229
  Receipt Date: 20120220
  Transmission Date: 20120608
  Serious: Yes (Congenital Anomaly)
  Sender: FDA-Public Use
  Company Number: US-FRI-1000028138

PATIENT
  Sex: Male

DRUGS (2)
  1. LEXAPRO [Suspect]
     Route: 064
  2. FOLIC ACID [Concomitant]
     Route: 064

REACTIONS (2)
  - SPINA BIFIDA [None]
  - ARNOLD-CHIARI MALFORMATION [None]
